FAERS Safety Report 9304070 (Version 2)
Quarter: 2013Q1

REPORT INFORMATION
  Report Type: Spontaneous
  Country: IT (occurrence: None)
  Receive Date: 20130129
  Receipt Date: 20130206
  Transmission Date: 20140127
  Serious: Yes (Other)
  Sender: FDA-Public Use
  Company Number: 2013-00816

PATIENT
  Age: 73 Year
  Sex: Male

DRUGS (1)
  1. RAMIPRIL (RAMIPRIL) UNK [Suspect]
     Indication: HYPERTENSION
     Route: 048
     Dates: start: 20111218, end: 20121218

REACTIONS (1)
  - Psoriasis [None]
